FAERS Safety Report 10366758 (Version 1)
Quarter: 2014Q3

REPORT INFORMATION
  Report Type: Spontaneous
  Country: US (occurrence: US)
  Receive Date: 20140806
  Receipt Date: 20140806
  Transmission Date: 20150326
  Serious: Yes (Other)
  Sender: FDA-Public Use
  Company Number: US-AMGEN-USASP2014059109

PATIENT
  Age: 55 Year
  Sex: Female

DRUGS (1)
  1. ENBREL [Suspect]
     Active Substance: ETANERCEPT
     Indication: RHEUMATOID ARTHRITIS
     Dosage: 50 MG, QWK
     Route: 065
     Dates: start: 20120701

REACTIONS (15)
  - Injection site warmth [Not Recovered/Not Resolved]
  - Pharyngitis streptococcal [Recovered/Resolved]
  - Fatigue [Unknown]
  - Malaise [Not Recovered/Not Resolved]
  - Diarrhoea [Recovered/Resolved]
  - Gastrointestinal tract irritation [Recovered/Resolved]
  - Upper respiratory tract infection [Not Recovered/Not Resolved]
  - Hunger [Unknown]
  - Intestinal haemorrhage [Recovered/Resolved]
  - Injection site swelling [Not Recovered/Not Resolved]
  - Wound [Not Recovered/Not Resolved]
  - Scab [Not Recovered/Not Resolved]
  - Influenza [Not Recovered/Not Resolved]
  - Scar [Not Recovered/Not Resolved]
  - Animal scratch [Not Recovered/Not Resolved]

NARRATIVE: CASE EVENT DATE: 2014
